FAERS Safety Report 8907093 (Version 1)
Quarter: 2012Q4

REPORT INFORMATION
  Report Type: 
  Country: US (occurrence: US)
  Receive Date: 20121114
  Receipt Date: 20121114
  Transmission Date: 20130627
  Serious: No
  Sender: FDA-Public Use
  Company Number: US-009507513-1211USA005205

PATIENT
  Age: 19 Year
  Sex: Female
  Weight: 122.45 kg

DRUGS (5)
  1. IMPLANON [Suspect]
     Indication: CONTRACEPTION
     Dosage: 1 rod every 3  years
     Route: 059
     Dates: start: 201206
  2. ABILIFY [Concomitant]
  3. LEXAPRO [Concomitant]
  4. TRAZODONE HYDROCHLORIDE [Concomitant]
  5. NEURONTIN [Concomitant]

REACTIONS (1)
  - Hypersensitivity [Not Recovered/Not Resolved]
